FAERS Safety Report 16157085 (Version 1)
Quarter: 2019Q2

REPORT INFORMATION
  Report Type: Spontaneous
  Country: AT (occurrence: AU)
  Receive Date: 20190404
  Receipt Date: 20190404
  Transmission Date: 20190711
  Serious: Yes (Other)
  Sender: FDA-Public Use
  Company Number: AT-JNJFOC-20190340327

PATIENT
  Age: 83 Year
  Sex: Male

DRUGS (2)
  1. REGAINE FOAM 5% 3X60ML [Suspect]
     Active Substance: MINOXIDIL
     Indication: ALOPECIA
     Route: 061
     Dates: start: 20181031, end: 20190327
  2. REGAINE FOAM 5% 3X60ML [Suspect]
     Active Substance: MINOXIDIL
     Route: 061

REACTIONS (1)
  - Cerebrovascular accident [Unknown]

NARRATIVE: CASE EVENT DATE: 20190306
